FAERS Safety Report 9050491 (Version 6)
Quarter: 2014Q3

REPORT INFORMATION
  Report Type: Spontaneous
  Country: US (occurrence: US)
  Receive Date: 20130205
  Receipt Date: 20140808
  Transmission Date: 20150326
  Serious: Yes (Hospitalization, Disabling)
  Sender: FDA-Public Use
  Company Number: US-009507513-1301USA014628

PATIENT
  Sex: Male
  Weight: 88.89 kg

DRUGS (1)
  1. PROPECIA [Suspect]
     Active Substance: FINASTERIDE
     Indication: ANDROGENETIC ALOPECIA
     Dosage: 1 MG, QD
     Route: 048
     Dates: start: 200302, end: 2010

REACTIONS (23)
  - Loss of libido [Not Recovered/Not Resolved]
  - Semen volume decreased [Not Recovered/Not Resolved]
  - Ejaculation disorder [Not Recovered/Not Resolved]
  - Prostatitis Escherichia coli [Recovering/Resolving]
  - Fatigue [Not Recovered/Not Resolved]
  - Depression [Not Recovered/Not Resolved]
  - Muscle strain [Unknown]
  - Erectile dysfunction [Not Recovered/Not Resolved]
  - Benign prostatic hyperplasia [Unknown]
  - Anal pruritus [Unknown]
  - Upper limb fracture [Unknown]
  - Male genital atrophy [Not Recovered/Not Resolved]
  - Testicular pain [Not Recovered/Not Resolved]
  - Nocturia [Not Recovered/Not Resolved]
  - Asthenia [Unknown]
  - Orgasm abnormal [Not Recovered/Not Resolved]
  - Anxiety [Not Recovered/Not Resolved]
  - Dyslipidaemia [Not Recovered/Not Resolved]
  - Prostatitis [Unknown]
  - Polypectomy [Unknown]
  - Cervical spinal stenosis [Unknown]
  - Angina pectoris [Unknown]
  - Coronary artery disease [Unknown]

NARRATIVE: CASE EVENT DATE: 2005
